FAERS Safety Report 8789247 (Version 2)
Quarter: 2012Q4

REPORT INFORMATION
  Report Type: Spontaneous
  Country: US (occurrence: None)
  Receive Date: 20120904
  Receipt Date: 20120917
  Transmission Date: 20130627
  Serious: Yes (Hospitalization, Disabling)
  Sender: FDA-Public Use
  Company Number: 1402300

PATIENT
  Age: 59 Year
  Sex: Male

DRUGS (3)
  1. FENTANYL CITRATE [Suspect]
     Indication: DRUG USE FOR UNKNOWN INDICATION
  2. ALPRAZOLAM [Suspect]
     Indication: DRUG USE FOR UNKNOWN INDICATION
  3. ALCOHOL [Suspect]
     Indication: DRUG USE FOR UNKNOWN INDICATION

REACTIONS (10)
  - Posterior reversible encephalopathy syndrome [None]
  - Accidental overdose [None]
  - Hypoxia [None]
  - Blood alcohol increased [None]
  - Respiratory acidosis [None]
  - Pneumonia aspiration [None]
  - Myocardial infarction [None]
  - Rhabdomyolysis [None]
  - Renal failure acute [None]
  - Haemodialysis [None]
